FAERS Safety Report 7169963-8 (Version None)
Quarter: 2010Q4

REPORT INFORMATION
  Report Type: 
  Country: None (occurrence: None)
  Receive Date: 20101217
  Receipt Date: 20101208
  Transmission Date: 20110411
  Serious: Yes (Hospitalization)
  Sender: FDA-Public Use
  Company Number: CA-SANOFI-AVENTIS-2010SA068368

PATIENT
  Age: 71 Year
  Sex: Male

DRUGS (7)
  1. LOVENOX [Suspect]
     Indication: PROPHYLAXIS
     Route: 058
     Dates: start: 20101014, end: 20101019
  2. ANCEF [Concomitant]
     Indication: PROPHYLAXIS
     Route: 042
     Dates: start: 20101014, end: 20101016
  3. MORPHINE [Concomitant]
     Indication: PAIN
     Dosage: 5 TO 7.5MG EVERY 4 HOURS AS NEEDED.
     Route: 041
     Dates: start: 20101015, end: 20101018
  4. ALL OTHER THERAPEUTIC PRODUCTS [Concomitant]
     Indication: GLAUCOMA
     Route: 047
  5. TYLENOL W/ CODEINE NO. 3 [Concomitant]
     Indication: PAIN
     Dosage: 1-2 EVERY 4-6 HOURS AS NEEDED.
     Route: 048
     Dates: start: 20101015, end: 20101018
  6. ONDANSETRON [Concomitant]
     Indication: NAUSEA
     Dosage: IV OR SUBLINGUAL
     Dates: start: 20101015, end: 20101018
  7. NAPROSYN [Concomitant]
     Indication: PAIN
     Route: 048
     Dates: start: 20101014, end: 20101018

REACTIONS (10)
  - ABDOMINAL PAIN [None]
  - CONFUSIONAL STATE [None]
  - CRYING [None]
  - DIARRHOEA [None]
  - HALLUCINATION [None]
  - HEPATIC ENZYME INCREASED [None]
  - JAUNDICE [None]
  - NAUSEA [None]
  - PAROSMIA [None]
  - VOMITING [None]
